FAERS Safety Report 9500869 (Version 2)
Quarter: 2013Q3

REPORT INFORMATION
  Report Type: Spontaneous
  Country: CA (occurrence: CA)
  Receive Date: 20130905
  Receipt Date: 20130905
  Transmission Date: 20140515
  Serious: Yes (Hospitalization, Other)
  Sender: FDA-Public Use
  Company Number: CA-PURDUE-CAN-2012-0003398

PATIENT
  Age: 79 Year
  Sex: Female

DRUGS (3)
  1. DILAUDID [Suspect]
     Indication: BACK PAIN
     Dosage: 6 MG, UNK
     Route: 048
  2. DILAUDID [Suspect]
     Dosage: 18 MG, SINGLE
     Route: 065
  3. HUMIRA [Suspect]
     Indication: PRODUCT USED FOR UNKNOWN INDICATION
     Dosage: 40 MG, UNK
     Route: 058
     Dates: start: 20120326

REACTIONS (4)
  - Accidental overdose [Recovered/Resolved]
  - Medication error [Recovered/Resolved]
  - Spinal fracture [Recovered/Resolved]
  - Hallucination [Recovered/Resolved]
